FAERS Safety Report 5485440-4 (Version None)
Quarter: 2007Q4

REPORT INFORMATION
  Report Type: 
  Country: None (occurrence: None)
  Receive Date: 20071015
  Receipt Date: 20071002
  Transmission Date: 20080405
  Serious: Yes (Disabling, Other)
  Sender: FDA-Public Use
  Company Number: US-BAUSCH-2006BL005453

PATIENT
  Age: 43 Year
  Sex: Female

DRUGS (11)
  1. LOTEMAX [Suspect]
     Indication: EYE INFLAMMATION
     Route: 047
     Dates: start: 20060718, end: 20060802
  2. LOTEMAX [Suspect]
     Indication: CORNEAL INFILTRATES
     Route: 047
     Dates: start: 20060718, end: 20060802
  3. LOTEMAX [Suspect]
     Indication: KERATITIS
     Route: 047
     Dates: start: 20060718, end: 20060802
  4. LOTEMAX [Suspect]
     Route: 047
     Dates: start: 20060803, end: 20060831
  5. LOTEMAX [Suspect]
     Route: 047
     Dates: start: 20060803, end: 20060831
  6. LOTEMAX [Suspect]
     Route: 047
     Dates: start: 20060803, end: 20060831
  7. LOTEMAX [Suspect]
     Route: 047
     Dates: start: 20060901, end: 20060903
  8. LOTEMAX [Suspect]
     Route: 047
     Dates: start: 20060901, end: 20060903
  9. LOTEMAX [Suspect]
     Route: 047
     Dates: start: 20060901, end: 20060903
  10. OPTIVAR [Concomitant]
     Route: 047
     Dates: end: 20060902
  11. ARTIFICIAL TEARS [Concomitant]

REACTIONS (22)
  - ANXIETY [None]
  - BURNING SENSATION [None]
  - CHEMICAL BURNS OF EYE [None]
  - CONTACT LENS INTOLERANCE [None]
  - CORNEAL EPITHELIUM DEFECT [None]
  - CORNEAL OEDEMA [None]
  - CORNEAL SCAR [None]
  - DEPRESSION [None]
  - DERMATITIS EXFOLIATIVE [None]
  - DRUG HYPERSENSITIVITY [None]
  - DYSPNOEA [None]
  - GIANT PAPILLARY CONJUNCTIVITIS [None]
  - IMPAIRED DRIVING ABILITY [None]
  - IMPAIRED WORK ABILITY [None]
  - INSOMNIA [None]
  - KERATITIS [None]
  - KERATOCONJUNCTIVITIS SICCA [None]
  - LIP DRY [None]
  - OCULAR TOXICITY [None]
  - PHOTOPHOBIA [None]
  - THROAT IRRITATION [None]
  - VISUAL ACUITY REDUCED [None]
